FAERS Safety Report 7488377-4 (Version None)
Quarter: 2011Q2

REPORT INFORMATION
  Report Type: 
  Country: None (occurrence: None)
  Receive Date: 20110518
  Receipt Date: 20110512
  Transmission Date: 20111010
  Serious: Yes (Hospitalization)
  Sender: FDA-Public Use
  Company Number: US-PFIZER INC-2011102944

PATIENT
  Age: 69 Year
  Sex: Female

DRUGS (2)
  1. PREMARIN [Suspect]
     Indication: OESTROGEN REPLACEMENT THERAPY
     Dosage: 0.625 MG, UNK
     Route: 048
  2. PREMARIN [Suspect]
     Dosage: 0.45 MG, UNK
     Route: 048

REACTIONS (11)
  - LOSS OF CONSCIOUSNESS [None]
  - PAIN [None]
  - RENAL DISORDER [None]
  - CONFUSIONAL STATE [None]
  - ASTHENIA [None]
  - ARTHROPOD STING [None]
  - POLLAKIURIA [None]
  - STRESS [None]
  - FATIGUE [None]
  - MALAISE [None]
  - DIZZINESS [None]
